FAERS Safety Report 8560665-X (Version None)
Quarter: 2012Q2

REPORT INFORMATION
  Report Type: 
  Country: None (occurrence: None)
  Receive Date: 20120418
  Receipt Date: 20090205
  Transmission Date: 20120825
  Serious: Yes (Other)
  Sender: FDA-Public Use
  Company Number: PHEH2009US01457

PATIENT
  Age: 84 Year
  Sex: Female

DRUGS (3)
  1. ENABLEX [Suspect]
     Dates: start: 20090101
  2. BENADRYL ^ACHE^ (AMMONIUM CHLORIDE, DIPHENHYDRAMINE HYDROCHLORIDE, MEN [Concomitant]
  3. PERCOCET [Concomitant]

REACTIONS (2)
  - HALLUCINATION, VISUAL [None]
  - INSOMNIA [None]
